FAERS Safety Report 4532127-8 (Version None)
Quarter: 2004Q4

REPORT INFORMATION
  Report Type: 
  Country: None (occurrence: None)
  Receive Date: 20041217
  Receipt Date: 20041201
  Transmission Date: 20050328
  Serious: Yes (Hospitalization)
  Sender: FDA-Public Use
  Company Number: 2004VX000934

PATIENT
  Age: 58 Year
  Sex: Male

DRUGS (7)
  1. FLUOROURACIL [Suspect]
     Indication: HEPATIC NEOPLASM MALIGNANT
     Dosage: 125 MG; INTRA-ARTERIAL
     Route: 013
     Dates: start: 20041004, end: 20041112
  2. INTERFERON-A (GENERIC UNKNOWN) [Suspect]
     Dosage: 5000000 IU; SUBCUTANEOUS
     Route: 058
     Dates: start: 20041004, end: 20041112
  3. AMARYL [Concomitant]
  4. NAIXAN [Concomitant]
  5. FAMOTIDINE [Concomitant]
  6. HARNAL [Concomitant]
  7. LOXONIN [Concomitant]

REACTIONS (1)
  - PROSTATE CANCER [None]
